FAERS Safety Report 4727598-8 (Version None)
Quarter: 2005Q3

REPORT INFORMATION
  Report Type: 
  Country: None (occurrence: None)
  Receive Date: 20050727
  Receipt Date: 20050727
  Transmission Date: 20060218
  Serious: Yes (Hospitalization)
  Sender: FDA-Public Use
  Company Number: None

PATIENT
  Age: 50 Year
  Sex: Male
  Weight: 109 kg

DRUGS (1)
  1. METOPROLOL TARTRATE [Suspect]
     Indication: VENTRICULAR EXTRASYSTOLES
     Dosage: 12.5 MG    BID   ORAL
     Route: 048
     Dates: start: 20040721, end: 20050210

REACTIONS (1)
  - ATRIOVENTRICULAR BLOCK COMPLETE [None]
